FAERS Safety Report 7366833-7 (Version None)
Quarter: 2011Q1

REPORT INFORMATION
  Report Type: 
  Country: None (occurrence: None)
  Receive Date: 20110311
  Receipt Date: 20110301
  Transmission Date: 20110831
  Serious: Yes (Other)
  Sender: FDA-Public Use
  Company Number: 027170

PATIENT
  Sex: Female

DRUGS (9)
  1. OLMETEC [Concomitant]
  2. MICARDIS [Concomitant]
  3. NATRIX [Concomitant]
  4. MAGMITT [Concomitant]
  5. MUCOSOLVAN [Concomitant]
  6. LANSOPRAZOLE [Concomitant]
  7. KEPPRA [Suspect]
     Indication: EPILEPSY
     Dosage: 500 MG BID ORAL
     Route: 048
     Dates: start: 20101102, end: 20110131
  8. KEPPRA [Suspect]
     Indication: LACUNAR INFARCTION
     Dosage: 500 MG BID ORAL
     Route: 048
     Dates: start: 20101102, end: 20110131
  9. TEGRETOL [Concomitant]

REACTIONS (11)
  - HAEMOGLOBIN DECREASED [None]
  - BLOOD ALKALINE PHOSPHATASE INCREASED [None]
  - BLOOD CHOLESTEROL INCREASED [None]
  - HYPONATRAEMIA [None]
  - ELECTROLYTE IMBALANCE [None]
  - PLATELET COUNT DECREASED [None]
  - HAEMATOCRIT DECREASED [None]
  - DEPRESSED LEVEL OF CONSCIOUSNESS [None]
  - BLOOD CHLORIDE DECREASED [None]
  - BLOOD GLUCOSE INCREASED [None]
  - WHITE BLOOD CELL COUNT DECREASED [None]
